FAERS Safety Report 8325701-4 (Version None)
Quarter: 2012Q2

REPORT INFORMATION
  Report Type: 
  Country: None (occurrence: None)
  Receive Date: 20120501
  Receipt Date: 20120423
  Transmission Date: 20120825
  Serious: Yes (Other)
  Sender: FDA-Public Use
  Company Number: PHHY2012JP025215

PATIENT
  Age: 72 Year
  Sex: Male

DRUGS (2)
  1. NEORAL [Suspect]
     Indication: INTERSTITIAL LUNG DISEASE
     Dosage: 250 MG, UNK
     Route: 048
  2. NEORAL [Suspect]
     Dosage: 200 MG, UNK
     Route: 048

REACTIONS (2)
  - PNEUMOTHORAX [None]
  - MYCOBACTERIAL INFECTION [None]
